FAERS Safety Report 16143952 (Version 2)
Quarter: 2019Q4

REPORT INFORMATION
  Report Type: Spontaneous
  Country: CA (occurrence: CA)
  Receive Date: 20190401
  Receipt Date: 20191016
  Transmission Date: 20200122
  Serious: Yes (Other)
  Sender: FDA-Public Use
  Company Number: CA-PFIZER INC-2018499810

PATIENT
  Age: 74 Year
  Sex: Female

DRUGS (6)
  1. CANNABIDIOL [Concomitant]
     Active Substance: CANNABIDIOL
     Indication: PAIN MANAGEMENT
     Dosage: UNK
  2. METAMUCIL THERAPY FOR REGULARITY [Concomitant]
     Active Substance: PSYLLIUM HUSK
     Dosage: UNK
  3. NAPROXEN. [Concomitant]
     Active Substance: NAPROXEN
     Indication: PAIN MANAGEMENT
     Dosage: UNK
  4. XELJANZ [Suspect]
     Active Substance: TOFACITINIB CITRATE
     Dosage: 5 MG, 2X/DAY
     Route: 048
     Dates: start: 20190220, end: 20190306
  5. TYLENOL [Concomitant]
     Active Substance: ACETAMINOPHEN
     Indication: PAIN MANAGEMENT
     Dosage: UNK
  6. XELJANZ [Suspect]
     Active Substance: TOFACITINIB CITRATE
     Indication: RHEUMATOID ARTHRITIS
     Dosage: 5 MG, 1X/DAY
     Route: 048
     Dates: start: 20190114, end: 20190220

REACTIONS (6)
  - Renal cancer [Unknown]
  - Volvulus [Unknown]
  - Renal disorder [Unknown]
  - Pain [Recovered/Resolved]
  - Polyp [Unknown]
  - Intentional product misuse [Unknown]

NARRATIVE: CASE EVENT DATE: 2019
